FAERS Safety Report 5347062-5 (Version None)
Quarter: 2007Q2

REPORT INFORMATION
  Report Type: 
  Country: None (occurrence: None)
  Receive Date: 20070604
  Receipt Date: 20070529
  Transmission Date: 20071010
  Serious: Yes (Life-Threatening, Hospitalization)
  Sender: FDA-Public Use
  Company Number: 2007EN000044

PATIENT
  Age: 3 Year
  Sex: Female
  Weight: 14.5 kg

DRUGS (1)
  1. ONCASPAR [Suspect]
     Indication: ACUTE LYMPHOCYTIC LEUKAEMIA
     Dosage: 1525 IU; IM
     Route: 030
     Dates: start: 20060624, end: 20060731

REACTIONS (5)
  - ANAPHYLACTIC SHOCK [None]
  - EYELID OEDEMA [None]
  - LIP SWELLING [None]
  - OXYGEN SATURATION DECREASED [None]
  - URTICARIA [None]
